FAERS Safety Report 5000957-4 (Version None)
Quarter: 2006Q2

REPORT INFORMATION
  Report Type: 
  Country: None (occurrence: None)
  Receive Date: 20060512
  Receipt Date: 20060502
  Transmission Date: 20061013
  Serious: Yes (Hospitalization)
  Sender: FDA-Public Use
  Company Number: SG-ROCHE-446773

PATIENT
  Age: 50 Year
  Sex: Male

DRUGS (2)
  1. TICLOPIDINE HCL [Suspect]
     Indication: DRUG USE FOR UNKNOWN INDICATION
     Route: 048
  2. ENALAPRIL MALEATE [Concomitant]
     Route: 065

REACTIONS (3)
  - LIP EROSION [None]
  - ORAL SOFT TISSUE DISORDER [None]
  - RASH GENERALISED [None]
